FAERS Safety Report 7564815-3 (Version None)
Quarter: 2011Q2

REPORT INFORMATION
  Report Type: 
  Country: None (occurrence: None)
  Receive Date: 20110622
  Receipt Date: 20101208
  Transmission Date: 20111010
  Serious: Yes (Death)
  Sender: FDA-Public Use
  Company Number: US-MYLANLABS-2010S1022567

PATIENT
  Age: 70 Year
  Sex: Male

DRUGS (8)
  1. CLOZAPINE [Suspect]
     Route: 048
     Dates: start: 20100929
  2. MORPHINE [Concomitant]
  3. TEMAZEPAM [Concomitant]
  4. SINEMET [Concomitant]
  5. REMERON [Concomitant]
  6. MUCINEX [Concomitant]
  7. HALDOL [Concomitant]
  8. FLORINEF [Concomitant]

REACTIONS (1)
  - DEATH [None]
